FAERS Safety Report 26087876 (Version 3)
Quarter: 2025Q4

REPORT INFORMATION
  Report Type: Spontaneous
  Country: US (occurrence: US)
  Receive Date: 20251125
  Receipt Date: 20251201
  Transmission Date: 20260117
  Serious: No
  Sender: BELCHER PHARMACEUTICALS
  Company Number: US-BELCHER PHARMACEUTICALS, LLC-2025US002363

PATIENT

DRUGS (2)
  1. EPINEPHRINE [Suspect]
     Active Substance: EPINEPHRINE
     Indication: Product used for unknown indication
     Dosage: 100 MCG/ML, TOTAL VOLUME 45ML (D5W)
     Dates: start: 20250415
  2. EPINEPHRINE [Suspect]
     Active Substance: EPINEPHRINE
     Dosage: 100 MCG/ML, TOTAL VOLUME 45ML (D5W)

REACTIONS (1)
  - Drug ineffective [Unknown]

NARRATIVE: CASE EVENT DATE: 20250415
